FAERS Safety Report 24358078 (Version 2)
Quarter: 2024Q3

REPORT INFORMATION
  Report Type: Spontaneous
  Country: US (occurrence: US)
  Receive Date: 20240924
  Receipt Date: 20240927
  Transmission Date: 20241017
  Serious: No
  Sender: PFIZER
  Company Number: US-PFIZER INC-202400261144

PATIENT
  Age: 55 Year
  Sex: Male

DRUGS (2)
  1. NIRMATRELVIR\RITONAVIR [Suspect]
     Active Substance: NIRMATRELVIR\RITONAVIR
     Indication: COVID-19 treatment
     Dosage: UNK
     Dates: start: 2022, end: 2022
  2. BEBTELOVIMAB [Concomitant]
     Active Substance: BEBTELOVIMAB
     Indication: COVID-19 immunisation
     Dosage: UNK

REACTIONS (4)
  - Off label use [Unknown]
  - Product use issue [Unknown]
  - Hypertransaminasaemia [Recovered/Resolved]
  - Blood thyroid stimulating hormone increased [Recovered/Resolved]

NARRATIVE: CASE EVENT DATE: 20220101
